FAERS Safety Report 5542787-0 (Version None)
Quarter: 2007Q4

REPORT INFORMATION
  Report Type: 
  Country: None (occurrence: None)
  Receive Date: 20071123
  Receipt Date: 20070216
  Transmission Date: 20080405
  Serious: Yes (Other)
  Sender: FDA-Public Use
  Company Number: US-JNJFOC-20070204619

PATIENT
  Age: 83 Year
  Sex: Female

DRUGS (8)
  1. LEVAQUIN [Suspect]
     Indication: BRONCHITIS
     Dosage: ORAL
     Route: 048
     Dates: start: 20070101
  2. PROZAC [Concomitant]
  3. NORVASC [Concomitant]
  4. LASIX [Concomitant]
  5. DIPYRIDAMOLE [Concomitant]
  6. NEURONTIN [Concomitant]
  7. ASPIRIN [Concomitant]
  8. LISINOPRIL [Concomitant]

REACTIONS (1)
  - MUSCLE RUPTURE [None]
